FAERS Safety Report 10331057 (Version 1)
Quarter: 2014Q3

REPORT INFORMATION
  Report Type: Spontaneous
  Country: PE (occurrence: PE)
  Receive Date: 20140722
  Receipt Date: 20140722
  Transmission Date: 20150326
  Serious: Yes (Other)
  Sender: FDA-Public Use
  Company Number: PE-PFIZER INC-2014203979

PATIENT
  Sex: Male

DRUGS (1)
  1. EPAMIN [Suspect]
     Active Substance: PHENYTOIN SODIUM
     Dosage: UNK
     Route: 065
     Dates: end: 2000

REACTIONS (1)
  - Convulsion [Unknown]

NARRATIVE: CASE EVENT DATE: 2000
